FAERS Safety Report 16668854 (Version 2)
Quarter: 2019Q3

REPORT INFORMATION
  Report Type: Spontaneous
  Country: CH (occurrence: CH)
  Receive Date: 20190805
  Receipt Date: 20190809
  Transmission Date: 20191004
  Serious: Yes (Life-Threatening, Hospitalization)
  Sender: FDA-Public Use
  Company Number: CH-PFIZER INC-2019327850

PATIENT
  Age: 24 Year
  Sex: Male
  Weight: 75 kg

DRUGS (7)
  1. ADRENALINE [EPINEPHRINE] [Concomitant]
     Active Substance: EPINEPHRINE
     Dosage: 300 UG, UNK
     Route: 030
     Dates: start: 20190715, end: 20190715
  2. SOLU-MEDROL [Suspect]
     Active Substance: METHYLPREDNISOLONE SODIUM SUCCINATE
     Dosage: 125 MG, UNK (ON THE EMERGENCY WARD THERAPY WITH TAVEGYL AND PREDNISOLONE I.V. AS WELL AS ADRENALINE)
     Route: 042
     Dates: start: 20190715, end: 20190715
  3. XYZAL [Concomitant]
     Active Substance: LEVOCETIRIZINE DIHYDROCHLORIDE
     Dosage: 5 MG, UNK IN TOTAL
     Route: 048
     Dates: start: 20190715, end: 20190715
  4. PREDNISONE. [Suspect]
     Active Substance: PREDNISONE
     Dosage: 200 MG, UNK
     Route: 048
     Dates: start: 20190715
  5. TAVEGYL [Suspect]
     Active Substance: CLEMASTINE FUMARATE
     Dosage: 2 MG, UNK IN TOTAL
     Route: 042
     Dates: start: 20190715, end: 20190715
  6. FENIALLERG [Suspect]
     Active Substance: DIMETHINDENE MALEATE
     Dosage: 40 MG, UNK IN TOTAL
     Route: 048
     Dates: start: 20190715, end: 20190715
  7. ADRENALINE [EPINEPHRINE] [Concomitant]
     Active Substance: EPINEPHRINE
     Dosage: 300 UG, UNK  300MCG ADRENALINE I.M. AND 125 MG SOLUMEDROL I.V. AFTER CPR
     Route: 030
     Dates: start: 20190715, end: 20190715

REACTIONS (5)
  - Bradycardia [Recovered/Resolved]
  - Hypokalaemia [Recovered/Resolved]
  - Therapeutic product effect increased [Recovered/Resolved]
  - Electrocardiogram QT prolonged [Recovered/Resolved]
  - Cardiac arrest [Recovered/Resolved]

NARRATIVE: CASE EVENT DATE: 20190715
